FAERS Safety Report 7277186-7 (Version None)
Quarter: 2010Q4

REPORT INFORMATION
  Report Type: 
  Country: None (occurrence: None)
  Receive Date: 20101202
  Receipt Date: 20100722
  Transmission Date: 20110411
  Serious: Yes (Hospitalization)
  Sender: FDA-Public Use
  Company Number: KV201000231

PATIENT
  Age: 60 Year
  Sex: Female

DRUGS (2)
  1. EVAMIST [Suspect]
     Indication: ARTIFICIAL MENOPAUSE
     Dosage: 4.59 MG, QD, TRANSDERMAL, 3.06 MG, QD, TRANSDERMAL
     Route: 062
     Dates: start: 20081001
  2. CLINDAMYCIN [Concomitant]

REACTIONS (3)
  - ALOPECIA [None]
  - VOMITING [None]
  - WEIGHT INCREASED [None]
